FAERS Safety Report 17820733 (Version 1)
Quarter: 2020Q2

REPORT INFORMATION
  Report Type: Spontaneous
  Country: JP (occurrence: JP)
  Receive Date: 20200525
  Receipt Date: 20200525
  Transmission Date: 20200714
  Serious: Yes (Other)
  Sender: FDA-Public Use
  Company Number: NVSJ2020JP002029

PATIENT
  Age: 3 Month
  Sex: Female

DRUGS (3)
  1. IFOSFAMIDE. [Concomitant]
     Active Substance: IFOSFAMIDE
     Indication: GLIOBLASTOMA
     Dosage: UNK
     Route: 065
  2. ETOPOSIDE. [Suspect]
     Active Substance: ETOPOSIDE
     Indication: GLIOBLASTOMA
     Dosage: UNK
     Route: 041
  3. CARBOPLATIN. [Suspect]
     Active Substance: CARBOPLATIN
     Indication: GLIOBLASTOMA
     Dosage: UNK
     Route: 041

REACTIONS (4)
  - Intellectual disability [Unknown]
  - Epilepsy [Unknown]
  - Glioblastoma [Unknown]
  - Malignant neoplasm progression [Unknown]
